FAERS Safety Report 18499350 (Version 1)
Quarter: 2020Q4

REPORT INFORMATION
  Report Type: Spontaneous
  Country: OM (occurrence: OM)
  Receive Date: 20201113
  Receipt Date: 20201113
  Transmission Date: 20210114
  Serious: Yes (Other)
  Sender: FDA-Public Use
  Company Number: OM-SUN PHARMACEUTICAL INDUSTRIES LTD-2020RR-266108

PATIENT
  Age: 3 Year
  Sex: Female

DRUGS (2)
  1. METFORMIN [Suspect]
     Active Substance: METFORMIN HYDROCHLORIDE
     Indication: STEM CELL THERAPY
     Dosage: 20 MILLIGRAM/KILOGRAM, 17 DAYS BEFORE THE EVENT
     Route: 065
  2. METFORMIN [Suspect]
     Active Substance: METFORMIN HYDROCHLORIDE
     Dosage: 250 MG TWICE-DAILY, SIX DAYS PRIOR TO THE EVENT
     Route: 065

REACTIONS (2)
  - Lactic acidosis [Recovered/Resolved]
  - Hyperkalaemia [Recovered/Resolved]
